FAERS Safety Report 9344542 (Version 2)
Quarter: 2013Q2

REPORT INFORMATION
  Report Type: Other
  Country: DE (occurrence: DE)
  Receive Date: 20130612
  Receipt Date: 20130626
  Transmission Date: 20140414
  Serious: Yes (Hospitalization)
  Sender: FDA-Public Use
  Company Number: DE-NICOBRDEVP-2013-10237

PATIENT
  Age: 76 Year
  Sex: Female

DRUGS (5)
  1. RAMIPRIL (UNKNOWN) [Suspect]
     Indication: CARDIOMYOPATHY
     Dosage: 5 MG, DAILY
     Route: 048
  2. SPIRONOLACTONE (UNKNOWN) [Suspect]
     Indication: CARDIOMYOPATHY
     Dosage: 25 MG, DAILY
     Route: 048
  3. PRADAXA [Suspect]
     Indication: ATRIAL FIBRILLATION
     Dosage: 110 MG, UNK
     Route: 048
     Dates: start: 201301, end: 20130219
  4. TORASEMID [Concomitant]
     Indication: CARDIOMYOPATHY
     Dosage: 20 MG, DAILY
     Route: 048
  5. ACETYLSALICYLIC ACID [Concomitant]
     Indication: CORONARY ARTERY DISEASE
     Dosage: 100 MG, DAILY
     Route: 048

REACTIONS (3)
  - Blood creatinine increased [Unknown]
  - Haemoglobin decreased [Unknown]
  - International normalised ratio increased [Unknown]
